FAERS Safety Report 15007272 (Version 6)
Quarter: 2018Q3

REPORT INFORMATION
  Report Type: Report from Study
  Country: DK (occurrence: DK)
  Receive Date: 20180613
  Receipt Date: 20180720
  Transmission Date: 20181010
  Serious: Yes (Death, Hospitalization)
  Sender: FDA-Public Use
  Company Number: DK-JNJFOC-20180602706

PATIENT
  Age: 70 Year
  Sex: Female

DRUGS (1)
  1. IBRUTINIB [Suspect]
     Active Substance: IBRUTINIB
     Indication: CHRONIC LYMPHOCYTIC LEUKAEMIA
     Route: 048
     Dates: start: 20180418, end: 20180529

REACTIONS (6)
  - Abdominal pain [Not Recovered/Not Resolved]
  - Atrial fibrillation [Unknown]
  - Blood creatinine increased [Unknown]
  - Hypercalcaemia [Recovered/Resolved]
  - Escherichia infection [Recovered/Resolved]
  - Richter^s syndrome [Fatal]

NARRATIVE: CASE EVENT DATE: 20180529
